FAERS Safety Report 15207174 (Version 4)
Quarter: 2020Q4

REPORT INFORMATION
  Report Type: Spontaneous
  Country: DE (occurrence: DE)
  Receive Date: 20180727
  Receipt Date: 20201125
  Transmission Date: 20210113
  Serious: Yes (Hospitalization)
  Sender: FDA-Public Use
  Company Number: PHHY2018DE053710

PATIENT
  Age: 27 Year
  Sex: Female
  Weight: 104 kg

DRUGS (5)
  1. STELARA [Suspect]
     Active Substance: USTEKINUMAB
     Indication: CROHN^S DISEASE
     Dosage: 90 MG, UNK
     Route: 058
     Dates: start: 20180316
  2. STELARA [Suspect]
     Active Substance: USTEKINUMAB
     Dosage: 90 MG, UNK
     Route: 058
     Dates: start: 20170929
  3. STELARA [Suspect]
     Active Substance: USTEKINUMAB
     Dosage: 520 MG, UNK
     Route: 058
     Dates: start: 20170803
  4. PREDNISOLONE. [Suspect]
     Active Substance: PREDNISOLONE
     Indication: CROHN^S DISEASE
     Dosage: 20 MG, QD
     Route: 065
  5. STELARA [Suspect]
     Active Substance: USTEKINUMAB
     Dosage: 90 MG, UNK
     Route: 058
     Dates: start: 20171222

REACTIONS (1)
  - Ileus [Recovered/Resolved]

NARRATIVE: CASE EVENT DATE: 20180424
